FAERS Safety Report 7936173-3 (Version None)
Quarter: 2011Q4

REPORT INFORMATION
  Report Type: 
  Country: None (occurrence: None)
  Receive Date: 20111121
  Receipt Date: 20111108
  Transmission Date: 20120403
  Serious: Yes (Hospitalization)
  Sender: FDA-Public Use
  Company Number: FR-ACCORD-011162

PATIENT
  Age: 74 Year
  Sex: Female
  Weight: 67 kg

DRUGS (5)
  1. ONDANSE (ONDANSETRON) [Concomitant]
  2. METHYLPREDNISOLONE (MTEHYLPREDNISOLONE) [Concomitant]
  3. PACLITAXEL [Suspect]
     Indication: BREAST CANCER
     Dosage: 156.00-MG- /INTRAVENOUS
     Route: 042
     Dates: start: 20111012, end: 20111012
  4. POLARAMIN (POLARAMIN) [Concomitant]
  5. AZANTAC (AZANTAC) [Concomitant]

REACTIONS (7)
  - HEADACHE [None]
  - ABDOMINAL PAIN [None]
  - BACK PAIN [None]
  - DYSPNOEA [None]
  - NAUSEA [None]
  - INFUSION RELATED REACTION [None]
  - BRONCHOSPASM [None]
